FAERS Safety Report 8893101 (Version 1)
Quarter: 2012Q4

REPORT INFORMATION
  Report Type: Spontaneous
  Country: US (occurrence: None)
  Receive Date: 20121106
  Receipt Date: 20121106
  Transmission Date: 20130627
  Serious: Yes (Hospitalization)
  Sender: FDA-Public Use
  Company Number: None

PATIENT
  Age: 79 Year
  Sex: Female
  Weight: 89.4 kg

DRUGS (1)
  1. PRADAXA [Suspect]

REACTIONS (2)
  - Diarrhoea [None]
  - Rectal haemorrhage [None]
